FAERS Safety Report 7113816-8 (Version None)
Quarter: 2010Q4

REPORT INFORMATION
  Report Type: 
  Country: None (occurrence: None)
  Receive Date: 20101119
  Receipt Date: 20101111
  Transmission Date: 20110411
  Serious: Yes (Other)
  Sender: FDA-Public Use
  Company Number: US-TEVA-255075USA

PATIENT
  Sex: Female
  Weight: 86.26 kg

DRUGS (7)
  1. ALBUTEROL SULFATE AUTOHALER [Suspect]
     Route: 055
     Dates: start: 20101001
  2. LISINOPRIL [Concomitant]
  3. ATORVASTATIN CALCIUM [Concomitant]
  4. TIOTROPIUM BROMIDE [Concomitant]
  5. ALPRAZOLAM [Concomitant]
  6. LEVOTHYROXINE SODIUM [Concomitant]
  7. QUETIAPINE [Concomitant]

REACTIONS (1)
  - HAEMOPTYSIS [None]
